FAERS Safety Report 8086006-2 (Version None)
Quarter: 2012Q1

REPORT INFORMATION
  Report Type: 
  Country: None (occurrence: None)
  Receive Date: 20120128
  Receipt Date: 20110412
  Transmission Date: 20120608
  Serious: No
  Sender: FDA-Public Use
  Company Number: US-ABBOTT-11P-163-0718900-00

PATIENT
  Sex: Female
  Weight: 65.83 kg

DRUGS (2)
  1. HUMIRA [Suspect]
     Indication: PSORIASIS
     Dates: start: 20110201
  2. NAPHAZOLINE HYDROCHLORIDE [Concomitant]
     Indication: EYE IRRITATION

REACTIONS (5)
  - EYE PRURITUS [None]
  - PRURITUS [None]
  - RASH [None]
  - OCULAR HYPERAEMIA [None]
  - CONJUNCTIVITIS ALLERGIC [None]
